FAERS Safety Report 8236703-0 (Version None)
Quarter: 2012Q1

REPORT INFORMATION
  Report Type: 
  Country: None (occurrence: None)
  Receive Date: 20120326
  Receipt Date: 20120326
  Transmission Date: 20120608
  Serious: Yes (Other)
  Sender: FDA-Public Use
  Company Number: None

PATIENT
  Age: 64 Year
  Sex: Female
  Weight: 57.7 kg

DRUGS (2)
  1. ALENDRONATE SODIUM [Suspect]
     Indication: OSTEOPOROSIS
     Dosage: 70 MG WEEKLY 047
     Route: 048
     Dates: start: 20110601, end: 20111101
  2. ALENDRONATE SODIUM [Suspect]
     Indication: OSTEOPOROSIS
     Dosage: 70 MG WEEKLY 047
     Route: 048
     Dates: start: 20070101, end: 20100101

REACTIONS (3)
  - PAIN IN JAW [None]
  - ARTHRALGIA [None]
  - EAR PAIN [None]
